FAERS Safety Report 23213211 (Version 2)
Quarter: 2023Q4

REPORT INFORMATION
  Report Type: Spontaneous
  Country: FR (occurrence: FR)
  Receive Date: 20231121
  Receipt Date: 20231212
  Transmission Date: 20240110
  Serious: Yes (Death, Other)
  Sender: FDA-Public Use
  Company Number: FR-AFSSAPS-TO2023001432

PATIENT
  Age: 49 Year
  Sex: Male

DRUGS (1)
  1. OXALIPLATIN [Suspect]
     Active Substance: OXALIPLATIN
     Indication: Hepatic cancer
     Dosage: 130 MILLIGRAM
     Route: 040
     Dates: start: 20230727, end: 20230727

REACTIONS (2)
  - Cardio-respiratory arrest [Fatal]
  - Acute coronary syndrome [Fatal]

NARRATIVE: CASE EVENT DATE: 20230731
